FAERS Safety Report 10249967 (Version 1)
Quarter: 2014Q2

REPORT INFORMATION
  Report Type: Spontaneous
  Country: KR (occurrence: KR)
  Receive Date: 20140620
  Receipt Date: 20140620
  Transmission Date: 20141212
  Serious: Yes (Other)
  Sender: FDA-Public Use
  Company Number: KR-WATSON-2014-13896

PATIENT
  Age: 63 Year
  Sex: Female

DRUGS (1)
  1. GENTAMICIN (UNKNOWN) [Suspect]
     Indication: STREPTOCOCCAL INFECTION
     Dosage: UNK
     Route: 065

REACTIONS (1)
  - Phlebitis [Unknown]
